FAERS Safety Report 24527948 (Version 2)
Quarter: 2024Q4

REPORT INFORMATION
  Report Type: Spontaneous
  Country: US (occurrence: US)
  Receive Date: 20241021
  Receipt Date: 20241109
  Transmission Date: 20250115
  Serious: Yes (Other)
  Sender: BAXTER
  Company Number: US-BAXTER-2024BAX026080

PATIENT
  Age: 35 Year
  Sex: Female

DRUGS (2)
  1. THROMBIN TOPICAL RECOMBINANT [Suspect]
     Active Substance: THROMBIN ALFA
     Indication: Haemostasis
     Dosage: 5000U/5ML, TOPICAL THROMBIN APPLICATION/RECONSTITUTED TOPICAL SOLUTION INADVERTENTLY INJECTED INTRAV
     Route: 042
  2. THROMBIN TOPICAL RECOMBINANT [Suspect]
     Active Substance: THROMBIN ALFA
     Indication: Haemostasis
     Dosage: 5000U/5ML, TOPICAL THROMBIN APPLICATION/RECONSTITUTED TOPICAL SOLUTION INADVERTENTLY INJECTED INTRAV
     Route: 042

REACTIONS (12)
  - Transient ischaemic attack [Recovered/Resolved]
  - Paraesthesia [Recovered/Resolved]
  - Hypoaesthesia [Recovered/Resolved]
  - Seizure [Recovered/Resolved]
  - Tremor [Recovered/Resolved]
  - Deep vein thrombosis [Recovered/Resolved]
  - Pain [Recovered/Resolved]
  - Injection site pain [Recovered/Resolved]
  - Nausea [Recovered/Resolved]
  - Vomiting [Recovered/Resolved]
  - Leukocytosis [Recovered/Resolved]
  - Incorrect route of product administration [Unknown]
